FAERS Safety Report 23444103 (Version 4)
Quarter: 2024Q2

REPORT INFORMATION
  Report Type: Spontaneous
  Country: US (occurrence: US)
  Receive Date: 20240125
  Receipt Date: 20240606
  Transmission Date: 20240716
  Serious: Yes (Hospitalization)
  Sender: FDA-Public Use
  Company Number: US-SA-2024SA021473

PATIENT

DRUGS (1)
  1. LARONIDASE [Suspect]
     Active Substance: LARONIDASE
     Indication: Mucopolysaccharidosis I
     Dosage: 17.4 (UNITS NOT PROVIDED), QW
     Route: 042
     Dates: start: 20220210

REACTIONS (3)
  - Viral rhinitis [Recovered/Resolved]
  - Hypermobility syndrome [Unknown]
  - Joint noise [Recovered/Resolved]

NARRATIVE: CASE EVENT DATE: 20231201
